FAERS Safety Report 6784679-5 (Version None)
Quarter: 2010Q2

REPORT INFORMATION
  Report Type: 
  Country: None (occurrence: None)
  Receive Date: 20100622
  Receipt Date: 20100621
  Transmission Date: 20101027
  Serious: Yes (Life-Threatening)
  Sender: FDA-Public Use
  Company Number: B0657096A

PATIENT
  Age: 45 Year
  Sex: Female
  Weight: 85 kg

DRUGS (8)
  1. ALLI [Suspect]
     Indication: OBESITY
     Dosage: 3IUAX PER DAY
     Route: 048
     Dates: start: 20091001, end: 20091101
  2. FLUOXETINE [Suspect]
     Dosage: 3IUAX PER DAY
     Route: 048
     Dates: start: 20000101
  3. FEXOFENADINE [Concomitant]
     Dosage: 1IUAX PER DAY
     Route: 048
     Dates: start: 20091130
  4. NAPROXEN [Concomitant]
     Indication: BACK PAIN
     Dosage: 1000MG PER DAY
     Route: 048
     Dates: start: 20100205, end: 20100511
  5. OMEPRAZOLE [Concomitant]
     Dosage: 1IUAX PER DAY
     Route: 048
     Dates: start: 20091117, end: 20100511
  6. AMOXICILLIN [Concomitant]
     Indication: INFECTION
     Dosage: 3IUAX PER DAY
     Route: 048
     Dates: start: 20100319, end: 20100326
  7. VENTOLIN [Concomitant]
     Route: 055
     Dates: start: 20100319
  8. NORDETTE-28 [Concomitant]
     Route: 048
     Dates: start: 20100205

REACTIONS (2)
  - DEPRESSION SUICIDAL [None]
  - SELF-INJURIOUS IDEATION [None]
